FAERS Safety Report 10341537 (Version 1)
Quarter: 2014Q3

REPORT INFORMATION
  Report Type: Spontaneous
  Country: US (occurrence: None)
  Receive Date: 20140724
  Receipt Date: 20140724
  Transmission Date: 20150326
  Serious: Yes (Death, Hospitalization)
  Sender: FDA-Public Use
  Company Number: None

PATIENT
  Age: 65 Year
  Sex: Female
  Weight: 113.6 kg

DRUGS (2)
  1. CARBOPLATIN. [Suspect]
     Active Substance: CARBOPLATIN
     Dates: start: 20131218
  2. PACLITAXEL. [Suspect]
     Active Substance: PACLITAXEL
     Dates: start: 20131218

REACTIONS (13)
  - Pneumonia [None]
  - Atelectasis [None]
  - Mucosal inflammation [None]
  - Chronic obstructive pulmonary disease [None]
  - Respiratory tract congestion [None]
  - Cough [None]
  - Pleural effusion [None]
  - Delirium [None]
  - Dyspnoea [None]
  - Oral candidiasis [None]
  - Encephalopathy [None]
  - Malnutrition [None]
  - Generalised oedema [None]

NARRATIVE: CASE EVENT DATE: 20140212
